FAERS Safety Report 25140307 (Version 1)
Quarter: 2025Q1

REPORT INFORMATION
  Report Type: Report from Study
  Country: NL (occurrence: NL)
  Receive Date: 20250331
  Receipt Date: 20250331
  Transmission Date: 20250408
  Serious: Yes (Death, Other)
  Sender: MERZ
  Company Number: NL-MERZ PHARMACEUTICALS, LLC-ACO_177068_2025

PATIENT

DRUGS (1)
  1. DALFAMPRIDINE [Suspect]
     Active Substance: DALFAMPRIDINE
     Indication: Product used for unknown indication
     Dosage: 10 MILLIGRAM, BID
     Route: 065
     Dates: start: 20190925, end: 20250205

REACTIONS (1)
  - Death [Fatal]

NARRATIVE: CASE EVENT DATE: 20250205
